FAERS Safety Report 9000948 (Version 1)
Quarter: 2013Q1

REPORT INFORMATION
  Report Type: Spontaneous
  Country: IT (occurrence: IT)
  Receive Date: 20130107
  Receipt Date: 20130107
  Transmission Date: 20140127
  Serious: Yes (Hospitalization, Other)
  Sender: FDA-Public Use
  Company Number: PHHY2013IT001201

PATIENT
  Sex: Male

DRUGS (4)
  1. TEGRETOL [Suspect]
     Dosage: 600 MG DAILY
     Route: 048
     Dates: start: 20080131
  2. GARDENALE//PHENOBARBITAL [Suspect]
     Dosage: 100 MG DAILY
     Route: 048
     Dates: start: 20070721
  3. ZONEGRAN [Suspect]
     Dosage: 400 MG, DAILY
     Route: 048
     Dates: start: 20120112
  4. KEPPRA [Concomitant]
     Dosage: 1500 MG, DAILY
     Route: 048

REACTIONS (3)
  - Tibia fracture [Unknown]
  - Fibula fracture [Unknown]
  - Fall [Unknown]
